FAERS Safety Report 16902621 (Version 5)
Quarter: 2020Q2

REPORT INFORMATION
  Report Type: Spontaneous
  Country: GB (occurrence: GB)
  Receive Date: 20191010
  Receipt Date: 20200420
  Transmission Date: 20200713
  Serious: Yes (Hospitalization, Other)
  Sender: FDA-Public Use
  Company Number: GB-TEVA-2019-GB-1118912

PATIENT
  Age: 33 Year
  Sex: Female

DRUGS (10)
  1. PROMETHAZINE [Suspect]
     Active Substance: PROMETHAZINE HYDROCHLORIDE
     Indication: SEDATION
     Dosage: 25 MILLIGRAM DAILY;
     Route: 048
     Dates: start: 2016
  2. DESOGESTREL [Suspect]
     Active Substance: DESOGESTREL
     Indication: CONTRACEPTION
     Route: 048
  3. CLOZARIL [Suspect]
     Active Substance: CLOZAPINE
     Indication: SCHIZOPHRENIA
     Dosage: 400 MILLIGRAM DAILY;
     Route: 048
     Dates: start: 20180314
  4. CLOZARIL [Suspect]
     Active Substance: CLOZAPINE
     Route: 048
     Dates: start: 2018
  5. PROMETHAZINE [Suspect]
     Active Substance: PROMETHAZINE HYDROCHLORIDE
     Indication: SCHIZOPHRENIA
     Dosage: UNKNOWN
     Route: 048
  6. DULOXETINE. [Suspect]
     Active Substance: DULOXETINE
     Indication: PRODUCT USED FOR UNKNOWN INDICATION
     Dosage: 120 MILLIGRAM DAILY;
     Route: 048
  7. DESOGESTREL [Suspect]
     Active Substance: DESOGESTREL
     Dosage: UNKNOWN
     Route: 048
  8. DULOXETINE. [Suspect]
     Active Substance: DULOXETINE
     Dosage: UNKNOWN
     Route: 048
  9. SUKKARTO [Suspect]
     Active Substance: METFORMIN HYDROCHLORIDE
     Indication: DIABETES MELLITUS
     Dosage: 500 MILLIGRAM DAILY;
     Route: 048
     Dates: start: 2018
  10. SUKKARTO [Suspect]
     Active Substance: METFORMIN HYDROCHLORIDE
     Route: 048
     Dates: start: 2018

REACTIONS (4)
  - Mental disorder [Unknown]
  - Diabetes mellitus [Recovered/Resolved with Sequelae]
  - Salivary hypersecretion [Recovering/Resolving]
  - Constipation [Recovering/Resolving]

NARRATIVE: CASE EVENT DATE: 2018
